FAERS Safety Report 10186026 (Version 1)
Quarter: 2014Q2

REPORT INFORMATION
  Report Type: Spontaneous
  Country: JP (occurrence: JP)
  Receive Date: 20140521
  Receipt Date: 20140521
  Transmission Date: 20141212
  Serious: Yes (Hospitalization, Other)
  Sender: FDA-Public Use
  Company Number: JP-ACTAVIS-2014-10487

PATIENT
  Age: 71 Year
  Sex: Female

DRUGS (2)
  1. IRINOTECAN (UNKNOWN) [Suspect]
     Indication: CERVIX CARCINOMA STAGE III
     Dosage: 60MG/? ON DAY 1 AND 8 (CYCLE 1), 50 MG/M? (CYCLE 2 + 3) EACH CYCLE = 28 DAYS
  2. NEDAPLATIN [Suspect]
     Indication: CERVIX CARCINOMA STAGE III
     Dosage: 80 MG/M? ON DAY 1 (CYCLE 1 + 2), 50 MG/M? (CYCLE 3) EACH CYCLE = 28 DAYS
     Route: 065

REACTIONS (5)
  - Neutropenia [Recovering/Resolving]
  - Anaemia [Recovering/Resolving]
  - Thrombocytopenia [Recovering/Resolving]
  - Diarrhoea [Recovered/Resolved]
  - Fatigue [Recovering/Resolving]
